FAERS Safety Report 10653704 (Version 3)
Quarter: 2015Q1

REPORT INFORMATION
  Report Type: Spontaneous
  Country: US (occurrence: US)
  Receive Date: 20141216
  Receipt Date: 20150120
  Transmission Date: 20150720
  Serious: Yes (Hospitalization)
  Sender: FDA-Public Use
  Company Number: US-PFIZER INC-2014172385

PATIENT
  Age: 42 Year
  Sex: Female

DRUGS (16)
  1. ZOFRAN [Concomitant]
     Active Substance: ONDANSETRON HYDROCHLORIDE
     Dosage: 4 MG, UNK Q 6 H PRN
     Route: 042
  2. XALKORI [Suspect]
     Active Substance: CRIZOTINIB
     Indication: LUNG NEOPLASM MALIGNANT
     Dosage: 250 MG, 2X/DAY
  3. DECADRON [Concomitant]
     Active Substance: DEXAMETHASONE
     Dosage: 2 MG, DAILY
     Route: 048
  4. SYNTHROID [Concomitant]
     Active Substance: LEVOTHYROXINE SODIUM
     Dosage: 125 ?G, DAILY
     Route: 048
  5. ZYPREXA [Concomitant]
     Active Substance: OLANZAPINE
     Dosage: 5 MG, 1X/DAY
     Route: 048
  6. XALKORI [Suspect]
     Active Substance: CRIZOTINIB
     Dosage: 250 MG 2X/DAY
  7. NEURONTIN [Concomitant]
     Active Substance: GABAPENTIN
     Dosage: 100 MG, UNK Q 8 H
     Route: 048
  8. DUONEB [Concomitant]
     Active Substance: ALBUTEROL SULFATE\IPRATROPIUM BROMIDE
     Dosage: 3 ML, UNK Q4 H PRN
  9. MORPHINE [Concomitant]
     Active Substance: MORPHINE
     Dosage: 15 MG, 2X/DAY
     Route: 048
  10. MICONAZOLE [Concomitant]
     Active Substance: MICONAZOLE
     Dosage: 2 %, 2X/DAY AS NEEDED
     Route: 061
  11. WARFARIN [Concomitant]
     Active Substance: WARFARIN
     Dosage: UNK, DAILY
     Route: 048
  12. MYCOSTATIN [Concomitant]
     Active Substance: NYSTATIN
     Dosage: 5 ML, 4X/DAY
     Route: 048
  13. KEPPRA [Concomitant]
     Active Substance: LEVETIRACETAM
     Dosage: 500 MG, 2X/DAY
     Route: 048
  14. MORPHINE [Concomitant]
     Active Substance: MORPHINE
     Dosage: 15 MG, UNK Q4H PRN
     Route: 048
  15. COLACE [Concomitant]
     Active Substance: DOCUSATE SODIUM
     Dosage: 100 MG, 2X/DAY
     Route: 048
  16. MS CONTIN [Concomitant]
     Active Substance: MORPHINE SULFATE
     Dosage: UNK, 2X/DAY
     Route: 048

REACTIONS (2)
  - Pneumocystis jirovecii pneumonia [Recovering/Resolving]
  - Flank pain [Unknown]
